FAERS Safety Report 4508259-7 (Version None)
Quarter: 2004Q4

REPORT INFORMATION
  Report Type: 
  Country: None (occurrence: None)
  Receive Date: 20041123
  Receipt Date: 20031205
  Transmission Date: 20050328
  Serious: No
  Sender: FDA-Public Use
  Company Number: US-GLAXOSMITHKLINE-A0442162A

PATIENT
  Age: 58 Year
  Sex: Female

DRUGS (11)
  1. WELLBUTRIN [Suspect]
     Indication: DEPRESSION
     Dosage: 150MG TWICE PER DAY
     Route: 048
  2. PROZAC [Concomitant]
  3. AMITRIPTYLINE [Concomitant]
  4. VIOXX [Concomitant]
  5. METHOTREXATE [Concomitant]
  6. FOLIC ACID [Concomitant]
  7. CALCIUM [Concomitant]
  8. IMITREX [Concomitant]
  9. FIORINAL [Concomitant]
  10. ASPIRIN [Concomitant]
  11. VITAMIN [Concomitant]

REACTIONS (2)
  - ACCOMMODATION DISORDER [None]
  - EXTRASYSTOLES [None]
